FAERS Safety Report 20460813 (Version 2)
Quarter: 2022Q1

REPORT INFORMATION
  Report Type: Report from Study
  Country: FR (occurrence: FR)
  Receive Date: 20220211
  Receipt Date: 20220221
  Transmission Date: 20220423
  Serious: No
  Sender: FDA-Public Use
  Company Number: FR-TAKEDA-2022TUS007592

PATIENT
  Age: 6 Year
  Sex: Male

DRUGS (12)
  1. TEDUGLUTIDE [Suspect]
     Active Substance: TEDUGLUTIDE
     Indication: Short-bowel syndrome
     Dosage: 0.65 MILLIGRAM, QD
     Route: 065
     Dates: start: 20190521, end: 20200828
  2. TEDUGLUTIDE [Suspect]
     Active Substance: TEDUGLUTIDE
     Indication: Short-bowel syndrome
     Dosage: 0.65 MILLIGRAM, QD
     Route: 065
     Dates: start: 20190521, end: 20200828
  3. TEDUGLUTIDE [Suspect]
     Active Substance: TEDUGLUTIDE
     Indication: Short-bowel syndrome
     Dosage: 0.65 MILLIGRAM, QD
     Route: 065
     Dates: start: 20190521, end: 20200828
  4. TEDUGLUTIDE [Suspect]
     Active Substance: TEDUGLUTIDE
     Indication: Short-bowel syndrome
     Dosage: 0.65 MILLIGRAM, QD
     Route: 065
     Dates: start: 20190521, end: 20200828
  5. TEDUGLUTIDE [Suspect]
     Active Substance: TEDUGLUTIDE
     Dosage: 0.8 MILLIGRAM, QD
     Route: 065
     Dates: start: 20200828
  6. TEDUGLUTIDE [Suspect]
     Active Substance: TEDUGLUTIDE
     Dosage: 0.8 MILLIGRAM, QD
     Route: 065
     Dates: start: 20200828
  7. TEDUGLUTIDE [Suspect]
     Active Substance: TEDUGLUTIDE
     Dosage: 0.8 MILLIGRAM, QD
     Route: 065
     Dates: start: 20200828
  8. TEDUGLUTIDE [Suspect]
     Active Substance: TEDUGLUTIDE
     Dosage: 0.8 MILLIGRAM, QD
     Route: 065
     Dates: start: 20200828
  9. VITAMINS [Concomitant]
     Active Substance: VITAMINS
     Indication: Vitamin supplementation
     Dosage: 10 MILLILITER, QD
     Route: 048
     Dates: start: 20220125
  10. VENOFER [Concomitant]
     Active Substance: IRON SUCROSE
     Indication: Anaemia
     Dosage: 125 MILLIGRAM, QD
     Route: 042
     Dates: start: 20211202, end: 20211202
  11. VENOFER [Concomitant]
     Active Substance: IRON SUCROSE
     Dosage: 125 MILLIGRAM, QD
     Route: 042
     Dates: start: 20211125, end: 20211125
  12. VENOFER [Concomitant]
     Active Substance: IRON SUCROSE
     Dosage: 125 MILLIGRAM, QD
     Route: 042
     Dates: start: 20211118, end: 20211118

REACTIONS (1)
  - Dyspepsia [Recovered/Resolved]

NARRATIVE: CASE EVENT DATE: 20220101
